FAERS Safety Report 5217394-X (Version None)
Quarter: 2007Q1

REPORT INFORMATION
  Report Type: 
  Country: None (occurrence: None)
  Receive Date: 20070124
  Receipt Date: 20060202
  Transmission Date: 20070707
  Serious: No
  Sender: FDA-Public Use
  Company Number: US-GLAXOSMITHKLINE-A0592156A

PATIENT
  Age: 65 Year
  Sex: Female

DRUGS (7)
  1. PAXIL CR [Suspect]
     Dosage: 25MG PER DAY
     Route: 048
     Dates: start: 20051220
  2. MOTRIN [Concomitant]
  3. VITAMIN [Concomitant]
  4. FISH OIL [Concomitant]
  5. CALCIUM [Concomitant]
  6. OSTEO BI-FLEX [Concomitant]
  7. XANAX [Concomitant]

REACTIONS (1)
  - INSOMNIA [None]
